FAERS Safety Report 6941905-7 (Version None)
Quarter: 2010Q3

REPORT INFORMATION
  Report Type: 
  Country: None (occurrence: None)
  Receive Date: 20100823
  Receipt Date: 20100817
  Transmission Date: 20110219
  Serious: Yes (Other)
  Sender: FDA-Public Use
  Company Number: 20109154

PATIENT
  Age: 58 Year
  Sex: Male

DRUGS (1)
  1. LIORESAL [Suspect]
     Indication: MUSCLE SPASTICITY
     Dosage: MCG, DAILY, INTRATHECAL
     Route: 037

REACTIONS (9)
  - BLOOD CREATINE PHOSPHOKINASE INCREASED [None]
  - CATHETER SITE HAEMORRHAGE [None]
  - CONDITION AGGRAVATED [None]
  - DEVICE OCCLUSION [None]
  - HEADACHE [None]
  - MUSCLE SPASTICITY [None]
  - NO THERAPEUTIC RESPONSE [None]
  - UNDERDOSE [None]
  - UNEVALUABLE EVENT [None]
